FAERS Safety Report 23439965 (Version 2)
Quarter: 2024Q2

REPORT INFORMATION
  Report Type: Spontaneous
  Country: FR (occurrence: FR)
  Receive Date: 20240124
  Receipt Date: 20240429
  Transmission Date: 20240715
  Serious: Yes (Hospitalization, Other)
  Sender: FDA-Public Use
  Company Number: FR-PFIZER INC-PV202400008704

PATIENT
  Age: 13 Year
  Sex: Male
  Weight: 40 kg

DRUGS (5)
  1. OXBRYTA [Suspect]
     Active Substance: VOXELOTOR
     Indication: Haemolytic anaemia
     Dosage: 1500 MG, 1X/DAY
     Dates: start: 20231212
  2. HYDROXYUREA [Concomitant]
     Active Substance: HYDROXYUREA
     Dosage: CUMULATIVE TREATMENT DURATION OVER 12 MONHS BEFORE OXBRYTATREATMENT INITIATION: 12.
  3. SIKLOS [Concomitant]
     Active Substance: HYDROXYUREA
     Indication: Anaemia
     Dosage: 1000 MG, DAILY
     Dates: start: 20200615
  4. PENICILLIN V [Concomitant]
     Active Substance: PENICILLIN V
     Indication: Sickle cell disease
     Dosage: 1 MIU, 2X/DAY
     Dates: start: 20100915
  5. FOLIC ACID [Concomitant]
     Active Substance: FOLIC ACID
     Indication: Sickle cell disease
     Dosage: 5 MG, DAILY
     Dates: start: 20100915

REACTIONS (2)
  - Sickle cell anaemia with crisis [Unknown]
  - Platelet count increased [Unknown]
